FAERS Safety Report 23466173 (Version 1)
Quarter: 2024Q1

REPORT INFORMATION
  Report Type: Spontaneous
  Country: US (occurrence: None)
  Receive Date: 20240131
  Receipt Date: 20240131
  Transmission Date: 20240409
  Serious: Yes (Other)
  Sender: FDA-Public Use
  Company Number: None

PATIENT
  Age: 62 Year
  Sex: Male
  Weight: 91 kg

DRUGS (1)
  1. HERBALS\MITRAGYNINE [Suspect]
     Active Substance: HERBALS\MITRAGYNINE
     Indication: Osteoarthritis
     Dates: start: 20180117

REACTIONS (9)
  - Euphoric mood [None]
  - Anxiety [None]
  - Insomnia [None]
  - Drug dependence [None]
  - Rhinorrhoea [None]
  - Nasal congestion [None]
  - Influenza like illness [None]
  - Constipation [None]
  - Frustration tolerance decreased [None]

NARRATIVE: CASE EVENT DATE: 20240131
